FAERS Safety Report 6681157-9 (Version None)
Quarter: 2010Q2

REPORT INFORMATION
  Report Type: 
  Country: None (occurrence: None)
  Receive Date: 20100414
  Receipt Date: 20100407
  Transmission Date: 20101027
  Serious: Yes (Other)
  Sender: FDA-Public Use
  Company Number: NL-ASTRAZENECA-2010SE14663

PATIENT
  Sex: Male

DRUGS (1)
  1. PROPOFOL [Suspect]
     Indication: INDUCTION OF ANAESTHESIA
     Dosage: 100 ML VIAL USED FOR SEVERAL PATIENTS.
     Route: 042

REACTIONS (3)
  - DRUG ADMINISTRATION ERROR [None]
  - MULTI-ORGAN FAILURE [None]
  - SEPSIS [None]
